FAERS Safety Report 7082555-4 (Version None)
Quarter: 2010Q3

REPORT INFORMATION
  Report Type: 
  Country: None (occurrence: None)
  Receive Date: 20100929
  Receipt Date: 20100715
  Transmission Date: 20110219
  Serious: No
  Sender: FDA-Public Use
  Company Number: US-WYE-H16242810

PATIENT
  Age: 60 Year
  Sex: Female
  Weight: 73.55 kg

DRUGS (1)
  1. PRISTIQ [Suspect]
     Indication: DEPRESSION
     Dosage: 50 MG 1X PER 1 DAY, ORAL
     Route: 048
     Dates: start: 20090710, end: 20100709

REACTIONS (5)
  - CRYING [None]
  - DEPRESSION [None]
  - DRUG WITHDRAWAL SYNDROME [None]
  - FEELING ABNORMAL [None]
  - INSOMNIA [None]
